FAERS Safety Report 4622047-2 (Version None)
Quarter: 2005Q1

REPORT INFORMATION
  Report Type: 
  Country: None (occurrence: None)
  Receive Date: 20050329
  Receipt Date: 20040203
  Transmission Date: 20050727
  Serious: Yes (Other)
  Sender: FDA-Public Use
  Company Number: 10126

PATIENT
  Age: 85 Year
  Sex: Male

DRUGS (1)
  1. METHOTREXATE [Suspect]
     Dosage: 20 MG WEEKLY UNK
     Route: 065
     Dates: start: 20020822

REACTIONS (1)
  - PERICARDIAL EFFUSION [None]
